FAERS Safety Report 4279943-8 (Version None)
Quarter: 2004Q1

REPORT INFORMATION
  Report Type: 
  Country: None (occurrence: None)
  Receive Date: 20040126
  Receipt Date: 20040119
  Transmission Date: 20041129
  Serious: Yes (Life-Threatening)
  Sender: FDA-Public Use
  Company Number: 2004194886SK

PATIENT
  Age: 9 Year
  Sex: Male
  Weight: 26 kg

DRUGS (1)
  1. GENOTROPIN [Suspect]
     Indication: CATABOLIC STATE
     Dosage: 9.8 MG, WEEKLY, SUBCUTANEOUS
     Route: 058
     Dates: start: 19990611, end: 20031104

REACTIONS (2)
  - PLEURAL EFFUSION [None]
  - UNEXPECTED THERAPEUTIC DRUG EFFECT [None]
